FAERS Safety Report 21669017 (Version 2)
Quarter: 2023Q1

REPORT INFORMATION
  Report Type: Report from Study
  Country: US (occurrence: US)
  Receive Date: 20221201
  Receipt Date: 20230106
  Transmission Date: 20230418
  Serious: No
  Sender: FDA-Public Use
  Company Number: US-ABBVIE-4184695

PATIENT
  Age: 66 Year
  Sex: Male

DRUGS (1)
  1. RINVOQ [Suspect]
     Active Substance: UPADACITINIB
     Indication: Rheumatoid arthritis
     Dosage: FORM STRENGTH: 15 MILLIGRAM?FIRST ADMIN DATE: 27 OCT 2022
     Route: 048

REACTIONS (10)
  - Chest pain [Unknown]
  - Mobility decreased [Unknown]
  - Arthralgia [Unknown]
  - General physical condition abnormal [Unknown]
  - Grip strength decreased [Unknown]
  - Musculoskeletal stiffness [Recovered/Resolved]
  - Diarrhoea [Unknown]
  - Joint range of motion decreased [Unknown]
  - Peripheral swelling [Unknown]
  - Pain [Unknown]

NARRATIVE: CASE EVENT DATE: 20221001
